FAERS Safety Report 8286816-2 (Version None)
Quarter: 2012Q2

REPORT INFORMATION
  Report Type: 
  Country: None (occurrence: None)
  Receive Date: 20120416
  Receipt Date: 20120409
  Transmission Date: 20120825
  Serious: Yes (Other)
  Sender: FDA-Public Use
  Company Number: US-BRISTOL-MYERS SQUIBB COMPANY-16405979

PATIENT
  Age: 69 Year
  Sex: Male
  Weight: 77 kg

DRUGS (15)
  1. EXTRA STRENGTH TYLENOL [Concomitant]
  2. POTASSIUM CHLORIDE [Concomitant]
  3. LISINOPRIL [Concomitant]
  4. JANUVIA [Concomitant]
  5. IRON [Concomitant]
  6. COUMADIN [Suspect]
     Dates: start: 20110101
  7. PRILOSEC [Concomitant]
  8. TIKOSYN [Suspect]
     Indication: ATRIAL FIBRILLATION
     Dosage: CAPS
     Route: 048
     Dates: start: 20110101
  9. PLAVIX [Suspect]
     Dates: start: 20110101
  10. MAGNESIUM [Concomitant]
  11. MULTI-VITAMINS [Concomitant]
  12. METOPROLOL TARTRATE [Concomitant]
  13. LIPITOR [Concomitant]
  14. ASPIRIN [Suspect]
  15. ASCORBIC ACID [Concomitant]

REACTIONS (2)
  - GINGIVAL BLEEDING [None]
  - VASCULAR GRAFT [None]
